FAERS Safety Report 4308291-2 (Version None)
Quarter: 2004Q1

REPORT INFORMATION
  Report Type: 
  Country: None (occurrence: None)
  Receive Date: 20040301
  Receipt Date: 20031110
  Transmission Date: 20041129
  Serious: No
  Sender: FDA-Public Use
  Company Number: US-BRISTOL-MYERS SQUIBB COMPANY-12431870

PATIENT
  Age: 72 Year
  Sex: Female
  Weight: 70 kg

DRUGS (5)
  1. GLUCOPHAGE [Suspect]
     Indication: DIABETES MELLITUS NON-INSULIN-DEPENDENT
     Route: 048
  2. GLUCOTROL XL [Concomitant]
  3. TENORMIN [Concomitant]
  4. NORVASC [Concomitant]
  5. MULTI-VITAMIN [Concomitant]

REACTIONS (3)
  - DYSPEPSIA [None]
  - PRURITUS [None]
  - URTICARIA [None]
